FAERS Safety Report 6094840-3 (Version None)
Quarter: 2009Q1

REPORT INFORMATION
  Report Type: 
  Country: None (occurrence: None)
  Receive Date: 20090225
  Receipt Date: 20090211
  Transmission Date: 20090719
  Serious: No
  Sender: FDA-Public Use
  Company Number: US025448

PATIENT
  Sex: Female

DRUGS (4)
  1. FENTORA [Suspect]
     Indication: BREAKTHROUGH PAIN
     Dosage: 200 UG BUCCAL
     Route: 002
  2. FENTORA [Suspect]
     Indication: CANCER PAIN
     Dosage: 200 UG BUCCAL
     Route: 002
  3. OXYCODONE HCL [Concomitant]
  4. FENTANYL TRANSDERMAL SYSTEM [Concomitant]

REACTIONS (1)
  - DRUG PRESCRIBING ERROR [None]
